FAERS Safety Report 9309003 (Version 1)
Quarter: 2013Q2

REPORT INFORMATION
  Report Type: Spontaneous
  Country: BR (occurrence: BR)
  Receive Date: 20130524
  Receipt Date: 20130524
  Transmission Date: 20140414
  Serious: Yes (Other)
  Sender: FDA-Public Use
  Company Number: BR-009507513-1305BRA009968

PATIENT
  Age: 68 Year
  Sex: Male
  Weight: 64 kg

DRUGS (6)
  1. VYTORIN [Suspect]
     Indication: BLOOD CHOLESTEROL
     Dosage: 1 TABLET, QD
     Route: 048
     Dates: start: 2011
  2. ENALAPRIL MALEATE [Suspect]
     Indication: CARDIAC DISORDER
     Dosage: 1 TABLET, QD
     Route: 048
     Dates: start: 2001
  3. ENALAPRIL MALEATE [Suspect]
     Indication: BLOOD PRESSURE
  4. ATENOLOL [Concomitant]
     Indication: CARDIAC DISORDER
     Dosage: 1 TABLET, QD
  5. PANTOPRAZOLE [Concomitant]
     Indication: GASTRIC DISORDER
     Dosage: 1 TABLET, QD
     Dates: start: 2001
  6. METFORMIN [Concomitant]
     Indication: DIABETES MELLITUS
     Dosage: 2 TABLETS, BID
     Dates: start: 2001

REACTIONS (9)
  - Hepatic cancer [Unknown]
  - Nervousness [Not Recovered/Not Resolved]
  - Dry skin [Not Recovered/Not Resolved]
  - Weight decreased [Not Recovered/Not Resolved]
  - Cough [Not Recovered/Not Resolved]
  - Diarrhoea [Not Recovered/Not Resolved]
  - Rash [Not Recovered/Not Resolved]
  - Fatigue [Not Recovered/Not Resolved]
  - Pruritus [Not Recovered/Not Resolved]
